FAERS Safety Report 15795492 (Version 1)
Quarter: 2019Q1

REPORT INFORMATION
  Report Type: Spontaneous
  Country: US (occurrence: US)
  Receive Date: 20190107
  Receipt Date: 20190107
  Transmission Date: 20190417
  Serious: No
  Sender: FDA-Public Use
  Company Number: US-TARO-2018TAR00164

PATIENT
  Age: 59 Year
  Sex: Male

DRUGS (1)
  1. TRIAMCINOLONE CREAM 0.1% [Suspect]
     Active Substance: TRIAMCINOLONE
     Indication: DYSHIDROTIC ECZEMA
     Dosage: ^SPARINGLY,^ 3X/DAY
     Route: 061
     Dates: start: 20180109, end: 20180110

REACTIONS (3)
  - Peripheral swelling [Recovered/Resolved]
  - Skin fissures [Recovered/Resolved]
  - Erythema [Recovered/Resolved]

NARRATIVE: CASE EVENT DATE: 20180110
